FAERS Safety Report 6583171-0 (Version None)
Quarter: 2010Q1

REPORT INFORMATION
  Report Type: 
  Country: None (occurrence: None)
  Receive Date: 20100216
  Receipt Date: 20100203
  Transmission Date: 20100710
  Serious: Yes (Hospitalization)
  Sender: FDA-Public Use
  Company Number: JP-AMGEN-US392565

PATIENT
  Sex: Female
  Weight: 45 kg

DRUGS (9)
  1. ENBREL [Suspect]
     Indication: RHEUMATOID ARTHRITIS
     Route: 058
     Dates: start: 20080904, end: 20091030
  2. ENBREL [Suspect]
     Dosage: 25 MG (PREVIOUSLY ON LYOPHYLIZED) 2X/WEEK
     Route: 058
     Dates: start: 20080619, end: 20080901
  3. TAMIFLU [Suspect]
     Indication: INFLUENZA
     Route: 048
     Dates: start: 20091029, end: 20091102
  4. GASTER [Concomitant]
     Indication: GASTRITIS
     Route: 048
     Dates: start: 19970725
  5. PROGRAF [Concomitant]
     Indication: RHEUMATOID ARTHRITIS
     Route: 048
     Dates: start: 20050706
  6. VOLTAREN [Concomitant]
     Indication: RHEUMATOID ARTHRITIS
     Route: 048
     Dates: start: 19951006
  7. METALCAPTASE [Concomitant]
     Indication: RHEUMATOID ARTHRITIS
     Route: 048
     Dates: start: 19970725
  8. SOLON [Concomitant]
     Indication: GASTRITIS
     Route: 048
     Dates: start: 20050829
  9. MAGNESIUM OXIDE [Concomitant]
     Indication: GASTRITIS
     Route: 048
     Dates: start: 20080724

REACTIONS (5)
  - DEVICE RELATED INFECTION [None]
  - INFLUENZA [None]
  - KNEE ARTHROPLASTY [None]
  - PARONYCHIA [None]
  - STAPHYLOCOCCAL INFECTION [None]
